FAERS Safety Report 23071942 (Version 1)
Quarter: 2023Q4

REPORT INFORMATION
  Report Type: Spontaneous
  Country: US (occurrence: US)
  Receive Date: 20231017
  Receipt Date: 20231017
  Transmission Date: 20240110
  Serious: Yes (Other)
  Sender: FDA-Public Use
  Company Number: US-JNJFOC-20231027638

PATIENT
  Age: 78 Year
  Sex: Female

DRUGS (1)
  1. ELMIRON [Suspect]
     Active Substance: PENTOSAN POLYSULFATE SODIUM
     Indication: Product used for unknown indication
     Dosage: PER DAY
     Route: 048

REACTIONS (2)
  - Dry age-related macular degeneration [Recovering/Resolving]
  - Retinopathy [Unknown]

NARRATIVE: CASE EVENT DATE: 20200701
